FAERS Safety Report 18840153 (Version 1)
Quarter: 2021Q1

REPORT INFORMATION
  Report Type: Spontaneous
  Country: CN (occurrence: CN)
  Receive Date: 20210203
  Receipt Date: 20210203
  Transmission Date: 20210419
  Serious: Yes (Other)
  Sender: FDA-Public Use
  Company Number: CN-BAXTER-2021BAX002218

PATIENT
  Age: 66 Year
  Sex: Female
  Weight: 58 kg

DRUGS (10)
  1. RITUXIMAB. [Suspect]
     Active Substance: RITUXIMAB
     Dosage: RITUXIMAB 500 MG + 0.9% NS 500 ML
     Route: 041
     Dates: start: 20201217, end: 20201217
  2. 0.9% SODIUM CHLORIDE INJECTION [Suspect]
     Active Substance: SODIUM CHLORIDE
     Indication: MEDICATION DILUTION
     Dosage: ROUTE: INTRA?PUMP INJECTION, 0.9% NS 100 ML + RITUXIMAB 70 MG
     Route: 050
     Dates: start: 20201216, end: 20201216
  3. PIRARUBICIN HYDROCHLORIDE [Suspect]
     Active Substance: PIRARUBICIN HYDROCHLORIDE
     Indication: B-CELL SMALL LYMPHOCYTIC LYMPHOMA
     Dosage: PIRARUBICIN HYDROCHLORIDE 90 MG + 5% GLUCOSE (GS) 100 ML
     Route: 041
     Dates: start: 20201217, end: 20210117
  4. 0.9% SODIUM CHLORIDE INJECTION [Suspect]
     Active Substance: SODIUM CHLORIDE
     Dosage: 0.9% NS 500 ML + RITUXIMAB 500 MG
     Route: 041
     Dates: start: 20201217, end: 20201217
  5. VINCRISTINE SULFATE. [Suspect]
     Active Substance: VINCRISTINE SULFATE
     Indication: B-CELL SMALL LYMPHOCYTIC LYMPHOMA
     Dosage: VINCRISTINE SULFATE 2 MG + 0.9% NS 30 ML
     Route: 042
     Dates: start: 20201217, end: 20210117
  6. ENDOXAN [Suspect]
     Active Substance: CYCLOPHOSPHAMIDE
     Indication: B-CELL SMALL LYMPHOCYTIC LYMPHOMA
     Dosage: CYCLOPHOSPHAMIDE 1140 MG + 0.9% NORMAL SALINE (NS) 50 ML
     Route: 041
     Dates: start: 20201217, end: 20210117
  7. 0.9% SODIUM CHLORIDE INJECTION [Suspect]
     Active Substance: SODIUM CHLORIDE
     Dosage: 0.9% NS 30 ML + VINCRISTINE SULFATE 2 MG
     Route: 042
     Dates: start: 20201217, end: 20210117
  8. 0.9% SODIUM CHLORIDE INJECTION [Suspect]
     Active Substance: SODIUM CHLORIDE
     Dosage: CYCLOPHOSPHAMIDE 1140 MG + 0.9% NS 50 ML; 1 VIAL
     Route: 041
     Dates: start: 20201217, end: 20210117
  9. 5% GLUCOSE  INJECTION [Suspect]
     Active Substance: DEXTROSE
     Indication: MEDICATION DILUTION
     Dosage: 5% GS 100 ML + PIRARUBICIN HYDROCHLORIDE 90 MG
     Route: 041
     Dates: start: 20201217, end: 20210117
  10. RITUXIMAB. [Suspect]
     Active Substance: RITUXIMAB
     Indication: B-CELL SMALL LYMPHOCYTIC LYMPHOMA
     Dosage: ROUTE: INTRA?PUMP INJECTION, RITUXIMAB 70 MG + 0.9% NS 100 ML
     Route: 050
     Dates: start: 20201216, end: 20201216

REACTIONS (1)
  - Leukopenia [Recovering/Resolving]

NARRATIVE: CASE EVENT DATE: 20210107
